FAERS Safety Report 24558088 (Version 3)
Quarter: 2025Q2

REPORT INFORMATION
  Report Type: Spontaneous
  Country: JP (occurrence: JP)
  Receive Date: 20241028
  Receipt Date: 20250422
  Transmission Date: 20250717
  Serious: Yes (Other)
  Sender: BRISTOL-MYERS SQUIBB COMPANY
  Company Number: JP-ONO-2024JP021954

PATIENT
  Age: 83 Year
  Sex: Male

DRUGS (4)
  1. OPDIVO [Suspect]
     Active Substance: NIVOLUMAB
     Indication: Malignant neoplasm of unknown primary site
     Route: 041
  2. CARBAZOCHROME SODIUM SULFONATE [Suspect]
     Active Substance: CARBAZOCHROME SODIUM SULFONATE
     Indication: Haematuria
  3. TRANEXAMIC ACID [Suspect]
     Active Substance: TRANEXAMIC ACID
     Indication: Haematuria
  4. PROCHLORPERAZINE DIMETHANESULFONATE [Suspect]
     Active Substance: PROCHLORPERAZINE DIMETHANESULFONATE
     Indication: Nausea

REACTIONS (4)
  - Retinal artery occlusion [Unknown]
  - Haematuria [Unknown]
  - Nausea [Unknown]
  - Miosis [Recovering/Resolving]
